FAERS Safety Report 10205668 (Version 1)
Quarter: 2014Q2

REPORT INFORMATION
  Report Type: Spontaneous
  Country: US (occurrence: US)
  Receive Date: 20140530
  Receipt Date: 20140530
  Transmission Date: 20141212
  Serious: No
  Sender: FDA-Public Use
  Company Number: US-ASTRAZENECA-2014SE34659

PATIENT
  Age: 74 Year
  Sex: Male
  Weight: 79.4 kg

DRUGS (3)
  1. CASODEX [Suspect]
     Indication: PROSTATE CANCER
     Route: 048
     Dates: start: 201401
  2. CASODEX [Suspect]
     Indication: PROSTATE CANCER
     Route: 048
  3. CASODEX [Suspect]
     Indication: PROSTATE CANCER
     Route: 048

REACTIONS (3)
  - Hypotension [Recovering/Resolving]
  - Syncope [Recovering/Resolving]
  - Dizziness [Recovering/Resolving]
